FAERS Safety Report 18940744 (Version 2)
Quarter: 2021Q1

REPORT INFORMATION
  Report Type: Spontaneous
  Country: US (occurrence: US)
  Receive Date: 20210225
  Receipt Date: 20210310
  Transmission Date: 20210420
  Serious: Yes (Death, Other)
  Sender: FDA-Public Use
  Company Number: US-NOVOPROD-788698

PATIENT
  Age: 65 Year
  Sex: Female

DRUGS (1)
  1. NOVOLOG [Suspect]
     Active Substance: INSULIN ASPART
     Indication: DIABETES MELLITUS
     Dosage: UNK
     Route: 058

REACTIONS (6)
  - Hepatic cirrhosis [Not Recovered/Not Resolved]
  - Impaired gastric emptying [Unknown]
  - Autoimmune disorder [Unknown]
  - Hepatic failure [Fatal]
  - Hypothyroidism [Unknown]
  - Blood pressure increased [Unknown]

NARRATIVE: CASE EVENT DATE: 1999
